FAERS Safety Report 6355308-X (Version None)
Quarter: 2009Q3

REPORT INFORMATION
  Report Type: 
  Country: None (occurrence: None)
  Receive Date: 20090914
  Receipt Date: 20090902
  Transmission Date: 20100115
  Serious: Yes (Other)
  Sender: FDA-Public Use
  Company Number: PHHY2009NL37495

PATIENT
  Sex: Male

DRUGS (5)
  1. DIOVAN [Suspect]
     Dosage: 0.5 DF, QD
     Dates: start: 20090707, end: 20090806
  2. CARVEDILOL [Concomitant]
     Indication: CARDIAC DISORDER
     Dosage: 3.125 ONCE DAILY
     Dates: start: 20090201
  3. ACENOCOUMAROL [Concomitant]
     Indication: ANTICOAGULANT THERAPY
     Dosage: 3 DF, QD
     Dates: start: 20080201
  4. BUMETANIDE [Concomitant]
     Indication: DIURETIC THERAPY
     Dosage: 1 MG ONCE DAILY
     Dates: start: 20080201
  5. PANTOPRAZOLE SODIUM [Concomitant]
     Indication: GASTRIC DISORDER
     Dosage: 1 DF, QD
     Dates: start: 20080201

REACTIONS (2)
  - OEDEMA PERIPHERAL [None]
  - SKIN DISCOLOURATION [None]
